FAERS Safety Report 21508050 (Version 1)
Quarter: 2022Q4

REPORT INFORMATION
  Report Type: Spontaneous
  Country: ES (occurrence: ES)
  Receive Date: 20221026
  Receipt Date: 20221026
  Transmission Date: 20230112
  Serious: Yes (Hospitalization)
  Sender: FDA-Public Use
  Company Number: None

PATIENT
  Age: 77 Year
  Sex: Male

DRUGS (5)
  1. CIPROFLOXACIN [Suspect]
     Active Substance: CIPROFLOXACIN
     Indication: Salmonellosis
     Dosage: 500 MG, FOR 12 HOURS FREQUENCY TIME, DURATION 8 DAYS, 14 TABLETS
     Dates: start: 20220908, end: 20220915
  2. DESFESOTERODINE SUCCINATE [Concomitant]
     Active Substance: DESFESOTERODINE SUCCINATE
     Indication: Product used for unknown indication
     Dosage: 1 DOSAGE FORM, FOR 24 HOURS, 28 TABLETS
     Dates: start: 20210722
  3. ATORVASTATIN RATIO [Concomitant]
     Indication: Product used for unknown indication
     Dosage: 80 MG, FREQUENCY TIME 24 HOURS, 18 TABLETS
     Dates: start: 20220908
  4. TROMALYT [Concomitant]
     Active Substance: ASPIRIN
     Indication: Product used for unknown indication
     Dosage: 150 MG, FREQUENCY TIME 24 HOURS, 28 CAPSULE
     Dates: start: 20220908
  5. LORAZEPAM [Concomitant]
     Active Substance: LORAZEPAM
     Indication: Product used for unknown indication
     Dosage: 1 MG, FREQUENCY TIME 24 HOURS, 50 TABLET
     Dates: start: 20220908

REACTIONS (2)
  - Tubulointerstitial nephritis [Recovering/Resolving]
  - Acute kidney injury [Recovering/Resolving]

NARRATIVE: CASE EVENT DATE: 20220921
